FAERS Safety Report 6396662-2 (Version None)
Quarter: 2009Q4

REPORT INFORMATION
  Report Type: 
  Country: None (occurrence: None)
  Receive Date: 20091012
  Receipt Date: 20090930
  Transmission Date: 20100525
  Serious: No
  Sender: FDA-Public Use
  Company Number: CA-ELI_LILLY_AND_COMPANY-CA200909007159

PATIENT
  Sex: Male
  Weight: 27.211 kg

DRUGS (6)
  1. STRATTERA [Suspect]
     Dosage: 25 MG, DAILY (1/D)
     Route: 065
     Dates: start: 20060901
  2. HUMULIN N [Suspect]
     Dosage: 11 IU, EACH MORNING
     Route: 065
  3. HUMULIN N [Suspect]
     Dosage: 9 IU, EACH EVENING
     Route: 065
  4. HUMALOG [Suspect]
     Dosage: 3 IU, EACH MORNING
     Route: 065
  5. HUMALOG [Suspect]
     Dosage: 2 IU, EACH EVENING
     Route: 065
  6. CONCERTA [Concomitant]
     Dosage: 18 MG, DAILY (1/D)
     Route: 065

REACTIONS (2)
  - DIABETES MELLITUS [None]
  - WEIGHT DECREASED [None]
